FAERS Safety Report 17885602 (Version 1)
Quarter: 2020Q2

REPORT INFORMATION
  Report Type: Spontaneous
  Country: US (occurrence: US)
  Receive Date: 20200611
  Receipt Date: 20200611
  Transmission Date: 20200714
  Serious: Yes (Other)
  Sender: FDA-Public Use
  Company Number: US-PFIZER INC-2020227937

PATIENT
  Sex: Male

DRUGS (4)
  1. METHOCARBAMOL. [Interacting]
     Active Substance: METHOCARBAMOL
     Dosage: UNK
  2. GABAPENTIN. [Interacting]
     Active Substance: GABAPENTIN
     Dosage: UNK
  3. MOTRIN [Interacting]
     Active Substance: IBUPROFEN
     Dosage: 2400 IU, UNK
  4. VIAGRA [Suspect]
     Active Substance: SILDENAFIL CITRATE
     Dosage: UNK, MONTHLY (ONCE A MONTH)

REACTIONS (2)
  - Drug interaction [Unknown]
  - Erection increased [Unknown]

NARRATIVE: CASE EVENT DATE: 20200610
